FAERS Safety Report 4727550-2 (Version None)
Quarter: 2005Q3

REPORT INFORMATION
  Report Type: 
  Country: None (occurrence: None)
  Receive Date: 20050727
  Receipt Date: 20050727
  Transmission Date: 20060218
  Serious: Yes (Life-Threatening)
  Sender: FDA-Public Use
  Company Number: None

PATIENT
  Age: 35 Year
  Sex: Female
  Weight: 58.9676 kg

DRUGS (6)
  1. VANLAFAXINE  SA  37.5MG  WYETH-AYERST [Suspect]
     Indication: ANXIETY
     Dosage: 37.5 MG 1 EVERY AM X 7 ORAL
     Route: 048
     Dates: start: 20050621, end: 20050705
  2. VANLAFAXINE  SA  37.5MG  WYETH-AYERST [Suspect]
     Indication: POST-TRAUMATIC STRESS DISORDER
     Dosage: 37.5 MG 1 EVERY AM X 7 ORAL
     Route: 048
     Dates: start: 20050621, end: 20050705
  3. NORINYL [Concomitant]
  4. LISINOPRIL [Concomitant]
  5. PROPOXYPHENE HCL [Concomitant]
  6. PROMETHAZINE [Concomitant]

REACTIONS (1)
  - TRANSAMINASES INCREASED [None]
